FAERS Safety Report 9289972 (Version 1)
Quarter: 2013Q2

REPORT INFORMATION
  Report Type: Report from Study
  Country: US (occurrence: US)
  Receive Date: 20130515
  Receipt Date: 20130515
  Transmission Date: 20140414
  Serious: Yes (Hospitalization, Other)
  Sender: FDA-Public Use
  Company Number: US-JNJFOC-20130503301

PATIENT
  Sex: Female

DRUGS (5)
  1. REMICADE [Suspect]
     Indication: CROHN^S DISEASE
     Route: 042
  2. REMICADE [Suspect]
     Indication: CROHN^S DISEASE
     Route: 042
  3. PREDNISONE [Suspect]
     Indication: CROHN^S DISEASE
     Route: 065
  4. METHOTREXATE [Suspect]
     Indication: CROHN^S DISEASE
     Route: 065
     Dates: start: 201203
  5. METHOTREXATE [Suspect]
     Indication: CROHN^S DISEASE
     Dosage: RESTARTED METHOTREXATE AND STOPPED
     Route: 065

REACTIONS (5)
  - Crohn^s disease [Recovering/Resolving]
  - Arthritis [Not Recovered/Not Resolved]
  - Drug ineffective [Unknown]
  - Adverse drug reaction [Unknown]
  - Drug specific antibody present [Unknown]
